FAERS Safety Report 14580373 (Version 1)
Quarter: 2018Q1

REPORT INFORMATION
  Report Type: Spontaneous
  Country: CA (occurrence: CA)
  Receive Date: 20180228
  Receipt Date: 20180228
  Transmission Date: 20180509
  Serious: Yes (Disabling, Other)
  Sender: FDA-Public Use
  Company Number: CA-ASTRAZENECA-2018SE22465

PATIENT
  Age: 68 Year
  Sex: Female

DRUGS (7)
  1. NEXIUM [Suspect]
     Active Substance: ESOMEPRAZOLE MAGNESIUM
     Indication: OESOPHAGITIS
     Route: 048
  2. PROBIOTIC [Concomitant]
     Active Substance: PROBIOTICS NOS
  3. CO ENZYME Q [Concomitant]
  4. VIT D 3000 IU [Concomitant]
  5. TURMERIC [Concomitant]
     Active Substance: HERBALS\TURMERIC
  6. OMEGA 3 [Concomitant]
     Active Substance: OMEGA-3 FATTY ACIDS
  7. ALLOPURINOL. [Concomitant]
     Active Substance: ALLOPURINOL

REACTIONS (4)
  - Upper limb fracture [Unknown]
  - Hand fracture [Recovered/Resolved]
  - Osteopenia [Not Recovered/Not Resolved]
  - Myalgia [Not Recovered/Not Resolved]
